FAERS Safety Report 13224965 (Version 1)
Quarter: 2017Q1

REPORT INFORMATION
  Report Type: Spontaneous
  Country: US (occurrence: US)
  Receive Date: 20170213
  Receipt Date: 20170213
  Transmission Date: 20170428
  Serious: Yes (Other)
  Sender: FDA-Public Use
  Company Number: US-GLENMARK PHARMACEUTICALS INC, USA.-2016GMK023065

PATIENT
  Age: 15 Year
  Sex: Female

DRUGS (1)
  1. TRIMETHOPRIM SULFAMETHOXAZOLE [Suspect]
     Active Substance: SULFAMETHOXAZOLE\TRIMETHOPRIM
     Indication: PHARYNGITIS
     Dosage: UNK

REACTIONS (2)
  - Product use issue [Unknown]
  - Immune thrombocytopenic purpura [Recovered/Resolved]
